FAERS Safety Report 4577824-3 (Version None)
Quarter: 2005Q1

REPORT INFORMATION
  Report Type: 
  Country: None (occurrence: None)
  Receive Date: 20050209
  Receipt Date: 20050125
  Transmission Date: 20050727
  Serious: Yes (Other)
  Sender: FDA-Public Use
  Company Number: B0369316A

PATIENT
  Age: 53 Year
  Sex: Female

DRUGS (1)
  1. EPIVIR-HBV [Suspect]
     Dosage: ORAL
     Route: 048

REACTIONS (3)
  - HEPATITIS VIRAL [None]
  - HEPATOCELLULAR DAMAGE [None]
  - TRANSPLANT REJECTION [None]
